FAERS Safety Report 7907735-4 (Version None)
Quarter: 2011Q4

REPORT INFORMATION
  Report Type: 
  Country: None (occurrence: None)
  Receive Date: 20111110
  Receipt Date: 20111031
  Transmission Date: 20120403
  Serious: Yes (Other)
  Sender: FDA-Public Use
  Company Number: US-BAYER-2011-041784

PATIENT
  Age: 46 Year
  Sex: Female
  Weight: 65.76 kg

DRUGS (6)
  1. YASMIN [Suspect]
     Indication: PRODUCT USED FOR UNKNOWN INDICATION
     Dosage: UNK
     Dates: start: 20030901, end: 20070901
  2. MULTI-VITAMIN [Concomitant]
     Dosage: 1 DF, QD
  3. CIPROFLOXACIN [Concomitant]
  4. YAZ [Suspect]
     Indication: PRODUCT USED FOR UNKNOWN INDICATION
     Dosage: UNK
     Dates: start: 20071001, end: 20091201
  5. BIOTIN [Concomitant]
  6. CLARITIN [Concomitant]

REACTIONS (5)
  - INJURY [None]
  - CHOLECYSTITIS [None]
  - PANCREATITIS [None]
  - CHOLECYSTITIS CHRONIC [None]
  - PAIN [None]
